FAERS Safety Report 8697077 (Version 7)
Quarter: 2014Q4

REPORT INFORMATION
  Report Type: Spontaneous
  Country: FR (occurrence: FR)
  Receive Date: 20120801
  Receipt Date: 20141201
  Transmission Date: 20150529
  Serious: Yes (Death, Hospitalization, Other)
  Sender: FDA-Public Use
  Company Number: FR-009507513-1207FRA011117

PATIENT
  Age: 74 Year
  Sex: Female
  Weight: 82 kg

DRUGS (21)
  1. ROVAMYCINE [Suspect]
     Active Substance: SPIRAMYCIN
     Dosage: UNK
     Route: 051
     Dates: start: 20120509, end: 20120515
  2. UROMITEXAN [Concomitant]
     Active Substance: MESNA
     Dosage: 2000 MG, QD
     Route: 042
     Dates: start: 20120423, end: 20120427
  3. STAGID [Concomitant]
     Active Substance: METFORMIN PAMOATE
     Dosage: 700 MG, BID
  4. ZOPICLONE [Concomitant]
     Active Substance: ZOPICLONE
     Dosage: 7.5 G, QD
     Route: 048
  5. HOLOXAN [Interacting]
     Active Substance: IFOSFAMIDE
     Indication: MALIGNANT NEOPLASM OF PLEURA
     Dosage: 3840 MG, QD
     Route: 042
     Dates: start: 20120322, end: 20120325
  6. GRANOCYTE [Concomitant]
     Active Substance: LENOGRASTIM
     Dosage: 33600000 IU, QD
     Route: 042
     Dates: start: 20120428, end: 20120503
  7. SOLU-MEDROL [Concomitant]
     Active Substance: METHYLPREDNISOLONE SODIUM SUCCINATE
     Dosage: 60 MG, QD
     Route: 042
     Dates: start: 20120423, end: 20120427
  8. EMEND [Suspect]
     Active Substance: APREPITANT
     Indication: NAUSEA
     Dosage: 125 MG, QD
     Route: 048
     Dates: start: 20120424, end: 20120424
  9. HOLOXAN [Interacting]
     Active Substance: IFOSFAMIDE
     Dosage: 3840 MG, QD
     Route: 042
     Dates: start: 201204, end: 201204
  10. ZOPHREN (ONDANSETRON) [Concomitant]
     Active Substance: ONDANSETRON
     Indication: PROPHYLAXIS OF NAUSEA AND VOMITING
     Dosage: 8 MG, BID
     Route: 042
     Dates: start: 20120423, end: 20120427
  11. TARDYFERON [Concomitant]
     Active Substance: FERROUS SULFATE\FOLIC ACID
     Dosage: 80 MG, BID
     Route: 048
     Dates: start: 20120428
  12. ROCEPHIN [Suspect]
     Active Substance: CEFTRIAXONE SODIUM
     Dosage: 1 G, QD
     Route: 042
     Dates: start: 20120508, end: 20120515
  13. CALCIPARINE [Concomitant]
     Active Substance: HEPARIN CALCIUM
     Dosage: 5000 IU, QD
     Dates: start: 20120509, end: 20120520
  14. ALPRAZOLAM. [Concomitant]
     Active Substance: ALPRAZOLAM
     Dosage: 0.25 MG, QD
     Route: 048
  15. SMECTA [Concomitant]
     Active Substance: MONTMORILLONITE
     Dosage: 1 G, TID
     Dates: end: 20120504
  16. CETIRIZINE HYDROCHLORIDE. [Concomitant]
     Active Substance: CETIRIZINE HYDROCHLORIDE
     Dosage: 5 MG, UNK
     Route: 048
  17. VOGALENE [Concomitant]
     Active Substance: METOPIMAZINE
     Dosage: 7.5 G, TID AS NEEDED
     Dates: start: 20120428
  18. HOLOXAN [Interacting]
     Active Substance: IFOSFAMIDE
     Indication: SARCOMA
     Dosage: 3840 MG, QD
     Route: 051
     Dates: start: 20120425, end: 20120430
  19. SEROPLEX [Concomitant]
     Active Substance: ESCITALOPRAM OXALATE
     Dosage: 10 MG, QD
     Route: 048
  20. EMEND [Interacting]
     Active Substance: APREPITANT
     Dosage: 80 MG/DAY
     Route: 048
     Dates: start: 20120425, end: 20120425
  21. LYRICA [Concomitant]
     Active Substance: PREGABALIN
     Dosage: 75 MG, QD
     Route: 048

REACTIONS (6)
  - Renal failure [Recovering/Resolving]
  - Pancytopenia [Recovering/Resolving]
  - Drug interaction [Fatal]
  - Lung disorder [Unknown]
  - Toxic encephalopathy [Fatal]
  - Septic shock [Unknown]

NARRATIVE: CASE EVENT DATE: 20120510
